FAERS Safety Report 7042787-8 (Version None)
Quarter: 2010Q4

REPORT INFORMATION
  Report Type: 
  Country: None (occurrence: None)
  Receive Date: 20101013
  Receipt Date: 20100219
  Transmission Date: 20110411
  Serious: No
  Sender: FDA-Public Use
  Company Number: US-ASTRAZENECA-2010SE07449

PATIENT
  Age: 54 Year
  Sex: Female
  Weight: 168.7 kg

DRUGS (13)
  1. SYMBICORT [Suspect]
     Indication: ASTHMA
     Dosage: 640 MCG
     Route: 055
  2. IPATROPRIUM BROMIDE [Concomitant]
  3. BUSPIRONE HCL [Concomitant]
  4. ALBUTEROL [Concomitant]
  5. TRAMADOL [Concomitant]
  6. LEVOTHYROXINE [Concomitant]
  7. CABERGOLINE [Concomitant]
  8. INSULIN [Concomitant]
  9. MELATONIN [Concomitant]
  10. OMEPRAZOLE DR [Concomitant]
  11. RISPERIDONE [Concomitant]
  12. BUPROPION [Concomitant]
  13. DOCUSATE SODIUM [Concomitant]

REACTIONS (1)
  - GINGIVAL PAIN [None]
